FAERS Safety Report 11246219 (Version 1)
Quarter: 2015Q3

REPORT INFORMATION
  Report Type: Spontaneous
  Country: US (occurrence: None)
  Receive Date: 20150706
  Receipt Date: 20150706
  Transmission Date: 20151125
  Serious: Yes (Hospitalization, Other)
  Sender: FDA-Public Use
  Company Number: None

PATIENT
  Age: 30 Year
  Sex: Female
  Weight: 113.4 kg

DRUGS (13)
  1. PREDNISONE. [Concomitant]
     Active Substance: PREDNISONE
  2. QVAR INHALER [Concomitant]
  3. ENOXAPARIN 40 [Suspect]
     Active Substance: ENOXAPARIN
     Indication: THROMBOSIS
     Dates: start: 20141019, end: 20141022
  4. LORATADINE. [Concomitant]
     Active Substance: LORATADINE
  5. ITRACONAZOLE. [Concomitant]
     Active Substance: ITRACONAZOLE
  6. METFORMIN [Concomitant]
     Active Substance: METFORMIN HYDROCHLORIDE
  7. PATANASE [Concomitant]
     Active Substance: OLOPATADINE HYDROCHLORIDE
  8. EPIE PEN [Concomitant]
  9. HARI SKIN NAILS GUMMIE WITH BIOTIN [Concomitant]
  10. PROAIR HFA [Concomitant]
     Active Substance: ALBUTEROL SULFATE
  11. NITRO [Concomitant]
     Active Substance: NITROGLYCERIN
  12. BUTALBITAL/ACETAMINOPHEN/CAFF TABS [Concomitant]
  13. PANTROPRAZOLE [Concomitant]

REACTIONS (5)
  - Malaise [None]
  - Drug ineffective [None]
  - Menorrhagia [None]
  - Dizziness [None]
  - Headache [None]

NARRATIVE: CASE EVENT DATE: 20141019
